FAERS Safety Report 8890808 (Version 2)
Quarter: 2013Q1

REPORT INFORMATION
  Report Type: Spontaneous
  Country: JP (occurrence: JP)
  Receive Date: 20121107
  Receipt Date: 20130304
  Transmission Date: 20140127
  Serious: Yes (Other)
  Sender: FDA-Public Use
  Company Number: JP-ASTELLAS-2012JP010415

PATIENT
  Age: 10 Year
  Sex: Female

DRUGS (4)
  1. PROGRAF [Suspect]
     Indication: BONE MARROW TRANSPLANT
     Dosage: UNK
     Route: 048
     Dates: start: 2002, end: 2005
  2. METHOTREXATE [Concomitant]
     Route: 065
  3. METHYLPREDNISOLONE [Concomitant]
     Route: 065
  4. GLUCOBAY [Concomitant]
     Indication: HYPERGLYCAEMIA
     Route: 048

REACTIONS (3)
  - Renal glycosuria [Unknown]
  - Glomerulonephritis chronic [Unknown]
  - Diabetes mellitus [Unknown]
